FAERS Safety Report 12598362 (Version 1)
Quarter: 2016Q3

REPORT INFORMATION
  Report Type: Report from Study
  Country: US (occurrence: US)
  Receive Date: 20160726
  Receipt Date: 20160726
  Transmission Date: 20161109
  Serious: Yes (Hospitalization)
  Sender: FDA-Public Use
  Company Number: US-ABBVIE-16K-163-1669486-00

PATIENT
  Age: 60 Year
  Sex: Female
  Weight: 38.59 kg

DRUGS (2)
  1. HUMIRA [Suspect]
     Active Substance: ADALIMUMAB
     Route: 058
     Dates: start: 20160704
  2. HUMIRA [Suspect]
     Active Substance: ADALIMUMAB
     Indication: RHEUMATOID ARTHRITIS
     Route: 058
     Dates: start: 2008, end: 20160601

REACTIONS (7)
  - Peripheral swelling [Not Recovered/Not Resolved]
  - Organising pneumonia [Recovering/Resolving]
  - Vomiting [Unknown]
  - Abnormal faeces [Recovered/Resolved]
  - Clostridium difficile colitis [Recovered/Resolved]
  - Peripheral swelling [Recovering/Resolving]
  - Impaired gastric emptying [Recovered/Resolved]

NARRATIVE: CASE EVENT DATE: 2016
